FAERS Safety Report 19329464 (Version 2)
Quarter: 2021Q2

REPORT INFORMATION
  Report Type: Report from Study
  Country: US (occurrence: US)
  Receive Date: 20210528
  Receipt Date: 20210614
  Transmission Date: 20210717
  Serious: Yes (Life-Threatening, Hospitalization, Other)
  Sender: FDA-Public Use
  Company Number: US-GLAXOSMITHKLINE-US2021GSK114229

PATIENT
  Age: 39 Year
  Sex: Male
  Weight: 86.2 kg

DRUGS (5)
  1. LEXAPRO [Concomitant]
     Active Substance: ESCITALOPRAM OXALATE
     Indication: ANXIETY
     Dosage: UNK
     Dates: start: 2015
  2. ADDERALL [Concomitant]
     Active Substance: AMPHETAMINE ASPARTATE\AMPHETAMINE SULFATE\DEXTROAMPHETAMINE SACCHARATE\DEXTROAMPHETAMINE SULFATE
     Indication: ATTENTION DEFICIT HYPERACTIVITY DISORDER
     Dosage: UNK, ???????2018 00:00
     Dates: start: 2018
  3. AVODART [Concomitant]
     Active Substance: DUTASTERIDE
     Indication: BENIGN PROSTATIC HYPERPLASIA
     Dosage: UNK
     Dates: start: 2018
  4. AVODART [Concomitant]
     Active Substance: DUTASTERIDE
     Indication: ALOPECIA
  5. BUPROPION HYDROCHLORIDE XL [Suspect]
     Active Substance: BUPROPION HYDROCHLORIDE
     Indication: ANXIETY
     Dosage: 150 MG, QD
     Route: 048
     Dates: start: 2018, end: 20210303

REACTIONS (1)
  - Seizure [Recovered/Resolved]

NARRATIVE: CASE EVENT DATE: 20210303
